FAERS Safety Report 10526144 (Version 3)
Quarter: 2015Q3

REPORT INFORMATION
  Report Type: Spontaneous
  Country: US (occurrence: US)
  Receive Date: 20141017
  Receipt Date: 20150818
  Transmission Date: 20151125
  Serious: Yes (Other)
  Sender: FDA-Public Use
  Company Number: US-GILEAD-2014-0118583

PATIENT
  Age: 73 Year
  Sex: Female

DRUGS (19)
  1. LYRICA [Concomitant]
     Active Substance: PREGABALIN
  2. GABAPENTIN. [Concomitant]
     Active Substance: GABAPENTIN
  3. CALCIUM [Concomitant]
     Active Substance: CALCIUM
  4. MULTIVITAMIN                       /07504101/ [Concomitant]
     Active Substance: VITAMINS
  5. HYDROCODONE [Concomitant]
     Active Substance: HYDROCODONE
  6. LETAIRIS [Suspect]
     Active Substance: AMBRISENTAN
     Indication: PULMONARY HYPERTENSION
     Dosage: 5 MG, QD
     Route: 065
     Dates: start: 20140917
  7. WARFARIN [Concomitant]
     Active Substance: WARFARIN
  8. VITAMIN D [Concomitant]
     Active Substance: CHOLECALCIFEROL
  9. VITAMIN K NOS [Concomitant]
  10. SILDENAFIL. [Concomitant]
     Active Substance: SILDENAFIL
  11. FUROSEMIDE. [Concomitant]
     Active Substance: FUROSEMIDE
  12. MAGNESIUM [Concomitant]
     Active Substance: MAGNESIUM
  13. LYSINE [Concomitant]
     Active Substance: LYSINE
  14. FLONASE [Concomitant]
     Active Substance: FLUTICASONE PROPIONATE
  15. ALBUTEROL                          /00139501/ [Concomitant]
     Active Substance: ALBUTEROL
  16. UBIQUINOL [Concomitant]
  17. QUININE SULF [Concomitant]
  18. OMEGA 3                            /01334101/ [Concomitant]
     Active Substance: OMEGA-3 FATTY ACIDS
  19. POTASSIUM [Concomitant]
     Active Substance: POTASSIUM

REACTIONS (2)
  - Oedema [Unknown]
  - Oedema peripheral [Unknown]

NARRATIVE: CASE EVENT DATE: 20140922
